FAERS Safety Report 25747268 (Version 4)
Quarter: 2025Q4

REPORT INFORMATION
  Report Type: Report from Study
  Country: US (occurrence: US)
  Receive Date: 20250901
  Receipt Date: 20251027
  Transmission Date: 20260117
  Serious: Yes (Other)
  Sender: MALLINCKRODT
  Company Number: US-MALLINCKRODT-MNK202505123

PATIENT
  Sex: Female

DRUGS (4)
  1. CORTICOTROPIN [Suspect]
     Active Substance: CORTICOTROPIN
     Indication: Rheumatoid arthritis
     Dosage: UNKNOWN
  2. CORTICOTROPIN [Suspect]
     Active Substance: CORTICOTROPIN
     Indication: Rheumatoid arthritis
  3. PREDNISONE [Concomitant]
     Active Substance: PREDNISONE
     Dosage: UNKNOWN
  4. CORTISONE [Concomitant]
     Active Substance: CORTISONE
     Dosage: UNKNOWN

REACTIONS (8)
  - Bronchitis [Unknown]
  - Pneumonia [Unknown]
  - Urinary tract infection [Unknown]
  - Memory impairment [Unknown]
  - Immune system disorder [Unknown]
  - Nausea [Unknown]
  - Pyrexia [Unknown]
  - Product dose omission issue [Unknown]
